FAERS Safety Report 7178066-8 (Version None)
Quarter: 2010Q4

REPORT INFORMATION
  Report Type: 
  Country: None (occurrence: None)
  Receive Date: 20101220
  Receipt Date: 20101208
  Transmission Date: 20110411
  Serious: Yes (Death, Hospitalization)
  Sender: FDA-Public Use
  Company Number: A0814595A

PATIENT
  Age: 84 Year
  Sex: Female
  Weight: 64.1 kg

DRUGS (10)
  1. AVANDIA [Suspect]
     Dosage: 8MG PER DAY
     Route: 048
     Dates: end: 20031219
  2. XANAX [Concomitant]
  3. FLEXERIL [Concomitant]
  4. PLAVIX [Concomitant]
  5. GLIPIZIDE [Concomitant]
  6. SYNTHROID [Concomitant]
  7. KLOR-CON [Concomitant]
  8. OCEAN [Concomitant]
  9. SINEMET [Concomitant]
  10. DESYREL [Concomitant]

REACTIONS (5)
  - ARTERIOSCLEROSIS CORONARY ARTERY [None]
  - CARDIAC FAILURE CONGESTIVE [None]
  - CEREBRAL INFARCTION [None]
  - COAGULOPATHY [None]
  - RENAL FAILURE [None]
